FAERS Safety Report 6177824-6 (Version None)
Quarter: 2009Q2

REPORT INFORMATION
  Report Type: 
  Country: None (occurrence: None)
  Receive Date: 20090504
  Receipt Date: 20090423
  Transmission Date: 20091009
  Serious: Yes (Life-Threatening, Other)
  Sender: FDA-Public Use
  Company Number: AT-CELGENEUS-009-21880-09042053

PATIENT
  Sex: Male
  Weight: 80 kg

DRUGS (2)
  1. REVLIMID [Suspect]
     Indication: MULTIPLE MYELOMA
     Route: 048
     Dates: start: 20080401
  2. REVLIMID [Suspect]
     Route: 048
     Dates: start: 20090401

REACTIONS (2)
  - ESCHERICHIA SEPSIS [None]
  - PANCYTOPENIA [None]
